FAERS Safety Report 8976168 (Version 2)
Quarter: 2013Q1

REPORT INFORMATION
  Report Type: Spontaneous
  Country: JP (occurrence: JP)
  Receive Date: 20121220
  Receipt Date: 20130116
  Transmission Date: 20140127
  Serious: Yes (Disabling)
  Sender: FDA-Public Use
  Company Number: JP-ELI_LILLY_AND_COMPANY-JP201210010201

PATIENT
  Age: 71 Year
  Sex: Male
  Weight: 56 kg

DRUGS (5)
  1. GEMZAR [Suspect]
     Indication: BILE DUCT CANCER
     Dosage: 1250 MG, OTHER
     Route: 042
     Dates: start: 20121003, end: 20121003
  2. GEMZAR [Suspect]
     Dosage: 1250 MG, OTHER
     Dates: start: 20121015, end: 20121015
  3. GEMZAR [Suspect]
     Dosage: 1250 MG, OTHER
     Dates: start: 20121029, end: 20121029
  4. KYTRIL [Concomitant]
     Dosage: 3 MG, UNK
     Route: 065
  5. DECADRON                                /CAN/ [Concomitant]
     Dosage: 3.3 MG, UNKNOWN

REACTIONS (1)
  - Convulsion [Recovered/Resolved]
